FAERS Safety Report 4969459-5 (Version None)
Quarter: 2006Q2

REPORT INFORMATION
  Report Type: 
  Country: None (occurrence: None)
  Receive Date: 20060406
  Receipt Date: 20060328
  Transmission Date: 20061013
  Serious: Yes (Hospitalization, Other)
  Sender: FDA-Public Use
  Company Number: 200610742BCC

PATIENT
  Age: 83 Year
  Sex: Female
  Weight: 60.782 kg

DRUGS (10)
  1. MILK OF MAGNESIA TAB [Suspect]
     Indication: CONSTIPATION
     Dosage: 30 ML, ONCE, ORAL
     Route: 048
     Dates: start: 20060213
  2. TIKOSYN [Concomitant]
  3. PREVACID [Concomitant]
  4. ACEON [Concomitant]
  5. COUMADIN [Concomitant]
  6. PRAVACHOL [Concomitant]
  7. XANAX [Concomitant]
  8. LASIX [Concomitant]
  9. NEXIUM [Concomitant]
  10. DETROL [Concomitant]

REACTIONS (3)
  - FAECES DISCOLOURED [None]
  - GASTRITIS [None]
  - UPPER GASTROINTESTINAL HAEMORRHAGE [None]
